FAERS Safety Report 25821712 (Version 1)
Quarter: 2025Q3

REPORT INFORMATION
  Report Type: Spontaneous
  Country: JP (occurrence: JP)
  Receive Date: 20250919
  Receipt Date: 20250919
  Transmission Date: 20251020
  Serious: Yes (Other)
  Sender: BOEHRINGER INGELHEIM
  Company Number: JP-Komodo Health-a23aa00000A8YmjAAF

PATIENT

DRUGS (1)
  1. EMPAGLIFLOZIN\LINAGLIPTIN [Suspect]
     Active Substance: EMPAGLIFLOZIN\LINAGLIPTIN
     Indication: Product used for unknown indication

REACTIONS (1)
  - Nervous system disorder [Unknown]
